FAERS Safety Report 25536029 (Version 1)
Quarter: 2025Q3

REPORT INFORMATION
  Report Type: Spontaneous
  Country: US (occurrence: None)
  Receive Date: 20250709
  Receipt Date: 20250709
  Transmission Date: 20251020
  Serious: No
  Sender: FDA-CTU
  Company Number: None

PATIENT
  Age: 40 Year
  Sex: Female

DRUGS (1)
  1. EPINEPHRINE [Suspect]
     Active Substance: EPINEPHRINE
     Route: 058

REACTIONS (5)
  - Product label confusion [None]
  - Product communication issue [None]
  - Product label issue [None]
  - Device colour issue [None]
  - Product strength confusion [None]
